FAERS Safety Report 19737680 (Version 3)
Quarter: 2021Q3

REPORT INFORMATION
  Report Type: Spontaneous
  Country: PT (occurrence: PT)
  Receive Date: 20210824
  Receipt Date: 20210924
  Transmission Date: 20211014
  Serious: Yes (Hospitalization, Other)
  Sender: FDA-Public Use
  Company Number: PT-MYLANLABS-2021M1053733

PATIENT
  Age: 84 Year
  Sex: Male

DRUGS (2)
  1. MEMANTINE. [Suspect]
     Active Substance: MEMANTINE
     Dosage: 20 MILLIGRAM, QD
  2. MEMANTINE. [Suspect]
     Active Substance: MEMANTINE
     Indication: APHASIA
     Dosage: UNK(HE HAD STARTED MEMANTINE, TITRATED UP TO 10 MG BIDIRECTIONAL, 3 WEEKS AGO)
     Route: 048

REACTIONS (2)
  - Dyskinesia [Recovered/Resolved]
  - Myoclonus [Recovered/Resolved]
